FAERS Safety Report 8609894-7 (Version None)
Quarter: 2012Q3

REPORT INFORMATION
  Report Type: 
  Country: None (occurrence: None)
  Receive Date: 20120821
  Receipt Date: 20120817
  Transmission Date: 20120928
  Serious: Yes (Death, Other)
  Sender: FDA-Public Use
  Company Number: PHHY2012GB071705

PATIENT
  Age: 17 Year
  Sex: Female

DRUGS (3)
  1. CODEINE PHOSPHATE [Suspect]
  2. ACETAMINOPHEN [Suspect]
  3. CANNABINOIDS [Suspect]

REACTIONS (2)
  - MYOCARDIAL INFARCTION [None]
  - OVERDOSE [None]
